FAERS Safety Report 23144051 (Version 1)
Quarter: 2023Q4

REPORT INFORMATION
  Report Type: Spontaneous
  Country: US (occurrence: US)
  Receive Date: 20231103
  Receipt Date: 20231103
  Transmission Date: 20240110
  Serious: Yes (Other)
  Sender: FDA-Public Use
  Company Number: US-TEVA-2023-US-2941831

PATIENT
  Age: 65 Year
  Sex: Female

DRUGS (5)
  1. AUSTEDO [Suspect]
     Active Substance: DEUTETRABENAZINE
     Indication: Tardive dyskinesia
     Route: 065
     Dates: start: 2021
  2. AUSTEDO [Suspect]
     Active Substance: DEUTETRABENAZINE
     Dosage: 18 MG IN THE AM AND 6 MG IN THE PM
     Route: 065
     Dates: start: 20221025
  3. AUSTEDO [Suspect]
     Active Substance: DEUTETRABENAZINE
     Dosage: 18 MG IN THE AM AND 12 MG IN THE EVENING
     Route: 065
     Dates: start: 20231024
  4. Fancept [Concomitant]
     Indication: Product used for unknown indication
     Route: 065
     Dates: start: 2014
  5. SEROQUEL [Concomitant]
     Active Substance: QUETIAPINE FUMARATE
     Indication: Sleep disorder
     Route: 065

REACTIONS (4)
  - Lymphoma [Unknown]
  - COVID-19 [Unknown]
  - Throat tightness [Not Recovered/Not Resolved]
  - Dysphagia [Unknown]

NARRATIVE: CASE EVENT DATE: 20230101
